FAERS Safety Report 5724638-4 (Version None)
Quarter: 2008Q2

REPORT INFORMATION
  Report Type: 
  Country: None (occurrence: None)
  Receive Date: 20080430
  Receipt Date: 20080430
  Transmission Date: 20081010
  Serious: No
  Sender: FDA-Public Use
  Company Number: None

PATIENT
  Sex: Female

DRUGS (2)
  1. FLUOXETINE [Suspect]
     Indication: ANXIETY
     Dosage: 1 QD 3 TRIALS
  2. FLUOXETINE [Suspect]
     Indication: DEPRESSION
     Dosage: 1 QD 3 TRIALS

REACTIONS (2)
  - AGITATION [None]
  - IRRITABILITY [None]
